FAERS Safety Report 6742819-8 (Version None)
Quarter: 2010Q2

REPORT INFORMATION
  Report Type: 
  Country: None (occurrence: None)
  Receive Date: 20100525
  Receipt Date: 20100517
  Transmission Date: 20101027
  Serious: Yes (Other)
  Sender: FDA-Public Use
  Company Number: 012015

PATIENT
  Sex: Female
  Weight: 12.9 kg

DRUGS (2)
  1. KEPPRA [Suspect]
     Indication: EPILEPSY
     Dosage: (1500 MG, UNTIL 14 WEEKS OF GESTATION TRANSPLACENTAL)
     Route: 064
  2. PRENATAL VITAMINS /01549301/ [Concomitant]

REACTIONS (2)
  - ECZEMA [None]
  - MATERNAL DRUGS AFFECTING FOETUS [None]
